FAERS Safety Report 5734788-4 (Version None)
Quarter: 2008Q2

REPORT INFORMATION
  Report Type: 
  Country: None (occurrence: None)
  Receive Date: 20080508
  Receipt Date: 20080429
  Transmission Date: 20081010
  Serious: Yes (Hospitalization)
  Sender: FDA-Public Use
  Company Number: US023389

PATIENT
  Age: 47 Year
  Sex: Female
  Weight: 70.7611 kg

DRUGS (10)
  1. PROVIGIL [Suspect]
     Indication: SOMNOLENCE
     Dosage: 200 MG QAM ORAL
     Route: 048
     Dates: start: 20061001, end: 20080301
  2. DEPAKOTE [Suspect]
     Indication: AFFECTIVE DISORDER
     Dosage: 1000 MG QAM/PM ORAL
     Route: 048
     Dates: start: 19930101, end: 20071001
  3. DEPAKOTE [Suspect]
     Indication: DEPRESSION
     Dosage: 1000 MG QAM/PM ORAL
     Route: 048
     Dates: start: 19930101, end: 20071001
  4. LITHIUM CARBONATE [Concomitant]
  5. XANAX [Concomitant]
  6. VICODIN [Concomitant]
  7. STRATTERA [Concomitant]
  8. CYMBALTA [Concomitant]
  9. CLARITIN [Concomitant]
  10. EFFEXOR [Concomitant]

REACTIONS (9)
  - BLISTER [None]
  - DIARRHOEA [None]
  - PAIN [None]
  - PRURITUS [None]
  - PYREXIA [None]
  - SKIN EXFOLIATION [None]
  - SKIN ULCER [None]
  - URTICARIA [None]
  - VOMITING [None]
